FAERS Safety Report 8511507-X (Version None)
Quarter: 2012Q3

REPORT INFORMATION
  Report Type: 
  Country: None (occurrence: None)
  Receive Date: 20120716
  Receipt Date: 20120710
  Transmission Date: 20120928
  Serious: Yes (Other)
  Sender: FDA-Public Use
  Company Number: JP-JNJFOC-20120704971

PATIENT
  Age: 49 Year
  Sex: Female

DRUGS (2)
  1. DOXORUBICIN HCL [Suspect]
     Indication: OVARIAN CANCER
     Dosage: 2 CYCLES
     Route: 042
  2. DOXORUBICIN HCL [Suspect]
     Dosage: 2 CYCLES
     Route: 042

REACTIONS (1)
  - INTERSTITIAL LUNG DISEASE [None]
